FAERS Safety Report 4424673-2 (Version None)
Quarter: 2004Q3

REPORT INFORMATION
  Report Type: 
  Country: None (occurrence: None)
  Receive Date: 20040719
  Receipt Date: 20040414
  Transmission Date: 20050211
  Serious: Yes (Hospitalization)
  Sender: FDA-Public Use
  Company Number: 196176

PATIENT
  Age: 36 Year
  Sex: Female
  Weight: 39.9165 kg

DRUGS (3)
  1. AVONEX [Suspect]
     Indication: MULTIPLE SCLEROSIS
     Dosage: 30 MCG QW IM
     Route: 030
     Dates: start: 20000101, end: 20030101
  2. AVONEX [Suspect]
     Indication: MULTIPLE SCLEROSIS
     Dosage: 30 MCG QW IM
     Route: 030
     Dates: start: 20030101
  3. FOLIC ACID [Concomitant]

REACTIONS (8)
  - DEPRESSION [None]
  - DIFFICULTY IN WALKING [None]
  - EPILEPSY [None]
  - GASTROENTERITIS VIRAL [None]
  - INFLUENZA LIKE ILLNESS [None]
  - KIDNEY INFECTION [None]
  - WEIGHT DECREASED [None]
  - WHITE BLOOD CELL COUNT DECREASED [None]
